FAERS Safety Report 13943773 (Version 2)
Quarter: 2017Q4

REPORT INFORMATION
  Report Type: Spontaneous
  Country: FR (occurrence: FR)
  Receive Date: 20170907
  Receipt Date: 20171004
  Transmission Date: 20180320
  Serious: Yes (Hospitalization, Other)
  Sender: FDA-Public Use
  Company Number: FR-SA-2017SA161331

PATIENT
  Age: 66 Year
  Sex: Male
  Weight: 78 kg

DRUGS (18)
  1. FOSFOCINE [Suspect]
     Active Substance: FOSFOMYCIN
     Indication: DIABETIC FOOT INFECTION
     Route: 042
     Dates: start: 20170802, end: 20170820
  2. TOUJEO [Suspect]
     Active Substance: INSULIN GLARGINE
     Indication: INSULIN-REQUIRING TYPE 2 DIABETES MELLITUS
     Route: 058
     Dates: start: 20170616
  3. ZAMUDOL [Suspect]
     Active Substance: TRAMADOL HYDROCHLORIDE
     Indication: ANALGESIC THERAPY
     Route: 048
     Dates: start: 20170618, end: 20170817
  4. SOLOSTAR [Suspect]
     Active Substance: DEVICE
     Indication: INSULIN-REQUIRING TYPE 2 DIABETES MELLITUS
     Dates: start: 20170616
  5. TAZOCILLINE [Suspect]
     Active Substance: PIPERACILLIN SODIUM\TAZOBACTAM SODIUM
     Indication: DIABETIC FOOT INFECTION
     Route: 042
     Dates: start: 20170615, end: 20170802
  6. HUMALOG [Suspect]
     Active Substance: INSULIN LISPRO
     Indication: INSULIN-REQUIRING TYPE 2 DIABETES MELLITUS
     Route: 058
  7. HUMALOG [Suspect]
     Active Substance: INSULIN LISPRO
     Indication: INSULIN-REQUIRING TYPE 2 DIABETES MELLITUS
     Dosage: 100 IU/ML KIWIKPEN
     Route: 057
  8. ALPRAZOLAM. [Suspect]
     Active Substance: ALPRAZOLAM
     Indication: ANXIOLYTIC THERAPY
     Route: 048
     Dates: start: 20170718, end: 20170719
  9. CIPROFLOXACIN. [Suspect]
     Active Substance: CIPROFLOXACIN
     Indication: DIABETIC FOOT INFECTION
     Route: 048
     Dates: start: 20170628, end: 20170821
  10. PRIMPERAN [Suspect]
     Active Substance: METOCLOPRAMIDE HYDROCHLORIDE
     Indication: ANTIEMETIC SUPPORTIVE CARE
     Route: 048
     Dates: start: 20170720
  11. METRONIDAZOLE. [Suspect]
     Active Substance: METRONIDAZOLE
     Indication: DIABETIC FOOT INFECTION
     Route: 042
     Dates: start: 20170615, end: 20170629
  12. CIMETIDINE [Suspect]
     Active Substance: CIMETIDINE
     Indication: GASTROOESOPHAGEAL REFLUX DISEASE
     Route: 048
     Dates: start: 20170718, end: 20170719
  13. VANCOMYCINE [Suspect]
     Active Substance: VANCOMYCIN
     Indication: DIABETIC FOOT INFECTION
     Route: 042
     Dates: start: 20170721, end: 20170820
  14. CETIRIZINE [Suspect]
     Active Substance: CETIRIZINE HYDROCHLORIDE
     Indication: ANTIALLERGIC THERAPY
     Route: 048
     Dates: start: 20170710, end: 20170712
  15. LOVENOX [Suspect]
     Active Substance: ENOXAPARIN SODIUM
     Indication: THROMBOSIS PROPHYLAXIS
     Route: 058
     Dates: start: 20170721
  16. DOLIPRANE [Suspect]
     Active Substance: ACETAMINOPHEN
     Indication: ANALGESIC THERAPY
     Route: 048
     Dates: start: 20170617
  17. NEFOPAM [Suspect]
     Active Substance: NEFOPAM
     Indication: ANALGESIC THERAPY
     Route: 042
     Dates: start: 20170617
  18. UVEDOSE [Suspect]
     Active Substance: CHOLECALCIFEROL
     Indication: VITAMIN D DEFICIENCY
     Dosage: 2 MONTHS
     Route: 048
     Dates: start: 20170620, end: 20170720

REACTIONS (2)
  - Hepatitis [Not Recovered/Not Resolved]
  - Hepatic enzyme increased [Not Recovered/Not Resolved]

NARRATIVE: CASE EVENT DATE: 20170817
